FAERS Safety Report 9547355 (Version 1)
Quarter: 2013Q3

REPORT INFORMATION
  Report Type: Spontaneous
  Country: US (occurrence: US)
  Receive Date: 20130924
  Receipt Date: 20130924
  Transmission Date: 20140515
  Serious: No
  Sender: FDA-Public Use
  Company Number: US-JNJFOC-20130910744

PATIENT
  Sex: Female

DRUGS (5)
  1. DURAGESIC [Suspect]
     Indication: MULTIPLE FRACTURES
     Dosage: ABOUT 7-8 YEARS AGO
     Route: 062
  2. DURAGESIC [Suspect]
     Indication: MULTIPLE FRACTURES
     Route: 062
  3. DURAGESIC [Suspect]
     Indication: BACK PAIN
     Dosage: ABOUT 7-8 YEARS AGO
     Route: 062
  4. DURAGESIC [Suspect]
     Indication: BACK PAIN
     Route: 062
  5. HYDROCODONE [Concomitant]
     Indication: BACK PAIN
     Dosage: 10-325MG, 1-2 TABLETS A DAY.
     Route: 048
     Dates: start: 2002

REACTIONS (5)
  - Pain [Recovered/Resolved]
  - Back pain [Recovered/Resolved]
  - Rash [Recovered/Resolved]
  - Drug administered at inappropriate site [Not Recovered/Not Resolved]
  - Wrong technique in drug usage process [Recovered/Resolved]
